FAERS Safety Report 7997325-X (Version None)
Quarter: 2011Q4

REPORT INFORMATION
  Report Type: 
  Country: None (occurrence: None)
  Receive Date: 20111221
  Receipt Date: 20111216
  Transmission Date: 20120403
  Serious: Yes (Death, Life-Threatening, Hospitalization, Disabling)
  Sender: FDA-Public Use
  Company Number: JP-BAYER-2011-105156

PATIENT
  Age: 62 Year
  Sex: Male
  Weight: 79 kg

DRUGS (5)
  1. UREPEARL [Concomitant]
     Indication: PROPHYLAXIS
     Dosage: UNK
     Route: 061
     Dates: start: 20110803, end: 20110914
  2. NEXAVAR [Suspect]
     Indication: HEPATIC NEOPLASM MALIGNANT
     Dosage: DAILY DOSE 200 MG
     Route: 048
     Dates: start: 20110801, end: 20110913
  3. LOSARTAN POTASSIUM [Concomitant]
     Dosage: DAILY DOSE 50 MG
     Route: 048
     Dates: start: 20110801, end: 20110919
  4. SM [Concomitant]
     Indication: PROPHYLAXIS
     Dosage: DAILY DOSE 3.9 G
     Route: 048
     Dates: start: 20110806, end: 20110903
  5. PYDOXAL [Concomitant]
     Indication: PROPHYLAXIS
     Dosage: DAILY DOSE 60 MG
     Route: 048
     Dates: start: 20110803, end: 20110914

REACTIONS (8)
  - HEPATIC ENCEPHALOPATHY [None]
  - ASCITES [None]
  - PANCREATIC ENZYMES INCREASED [None]
  - HYPERTENSION [None]
  - FATIGUE [None]
  - DECREASED APPETITE [None]
  - ALOPECIA [None]
  - RENAL IMPAIRMENT [None]
